FAERS Safety Report 5206512-5 (Version None)
Quarter: 2006Q4

REPORT INFORMATION
  Report Type: 
  Country: None (occurrence: None)
  Receive Date: 20061026
  Receipt Date: 20060823
  Transmission Date: 20070319
  Serious: No
  Sender: FDA-Public Use
  Company Number: 2006103939

PATIENT
  Age: 51 Year
  Sex: Female
  Weight: 97.5234 kg

DRUGS (6)
  1. LYRICA [Suspect]
     Indication: FIBROMYALGIA
     Dosage: 150 MG (75 MG 2 IN 1 D) ORAL
     Route: 048
     Dates: start: 20060101
  2. AVAPRO [Concomitant]
  3. CLONIDINE [Concomitant]
  4. TENORETIC 100 [Concomitant]
  5. LIPITOR [Concomitant]
  6. TRAMADOL HCL [Concomitant]

REACTIONS (5)
  - FEELING ABNORMAL [None]
  - FLUID RETENTION [None]
  - HUNGER [None]
  - MUSCULOSKELETAL STIFFNESS [None]
  - WEIGHT INCREASED [None]
